FAERS Safety Report 9996173 (Version 2)
Quarter: 2014Q3

REPORT INFORMATION
  Report Type: Spontaneous
  Country: JP (occurrence: JP)
  Receive Date: 20140311
  Receipt Date: 20140930
  Transmission Date: 20150326
  Serious: Yes (Other)
  Sender: FDA-Public Use
  Company Number: JP-TAKEDA-2014TEU001994

PATIENT
  Age: 43 Year
  Sex: Female

DRUGS (2)
  1. TACHOSIL [Suspect]
     Active Substance: FIBRINOGEN HUMAN\THROMBIN HUMAN
     Indication: PROPHYLAXIS
     Dosage: ONE SHEET OF REGULAR SIZE,QD
     Route: 050
     Dates: start: 20130820
  2. PLASMA [Concomitant]
     Active Substance: HUMAN PLASMA
     Dosage: UNK

REACTIONS (1)
  - Abdominal abscess [Recovered/Resolved]

NARRATIVE: CASE EVENT DATE: 20130901
